FAERS Safety Report 15676708 (Version 1)
Quarter: 2018Q4

REPORT INFORMATION
  Report Type: Spontaneous
  Country: IT (occurrence: IT)
  Receive Date: 20181130
  Receipt Date: 20181130
  Transmission Date: 20190205
  Serious: Yes (Life-Threatening)
  Sender: FDA-Public Use
  Company Number: PHHY2018IT170676

PATIENT
  Age: 58 Year
  Sex: Male

DRUGS (1)
  1. GENTAMICIN. [Suspect]
     Active Substance: GENTAMICIN
     Indication: ANTIBIOTIC PROPHYLAXIS
     Dosage: 80 MG, QD
     Route: 065
     Dates: start: 20070613

REACTIONS (6)
  - Tremor [Unknown]
  - Chills [Recovered/Resolved]
  - Paraesthesia [Recovered/Resolved]
  - Dyspnoea [Recovered/Resolved]
  - Hypertension [Recovered/Resolved]
  - Vasoconstriction [Recovered/Resolved]

NARRATIVE: CASE EVENT DATE: 20070613
